FAERS Safety Report 16930405 (Version 2)
Quarter: 2020Q1

REPORT INFORMATION
  Report Type: Spontaneous
  Country: US (occurrence: US)
  Receive Date: 20191017
  Receipt Date: 20200116
  Transmission Date: 20200409
  Serious: Yes (Life-Threatening, Other)
  Sender: FDA-Public Use
  Company Number: NVSC2019US001005

PATIENT
  Age: 76 Year
  Sex: Female
  Weight: 129 kg

DRUGS (2)
  1. LOVASTATIN. [Concomitant]
     Active Substance: LOVASTATIN
     Indication: HIGH DENSITY LIPOPROTEIN
     Dosage: 20 MG
     Route: 048
     Dates: start: 20150917, end: 20190502
  2. LOSARTAN. [Suspect]
     Active Substance: LOSARTAN
     Indication: HYPERTENSION
     Dosage: 100 MG, QD
     Route: 048
     Dates: start: 20141114, end: 20180205

REACTIONS (38)
  - Dehydration [Unknown]
  - Blood sodium decreased [Unknown]
  - Aspartate aminotransferase increased [Unknown]
  - Bilirubin conjugated increased [Unknown]
  - Hepatic enzyme increased [Recovered/Resolved]
  - Gait disturbance [Recovering/Resolving]
  - Weight decreased [Recovering/Resolving]
  - High density lipoprotein decreased [Unknown]
  - Blood bilirubin increased [Unknown]
  - Blood urea increased [Unknown]
  - Blood alkaline phosphatase increased [Unknown]
  - Fatigue [Unknown]
  - Near death experience [Recovering/Resolving]
  - Alanine aminotransferase increased [Unknown]
  - Confusional state [Recovered/Resolved]
  - Oedema due to hepatic disease [Recovering/Resolving]
  - Prothrombin time prolonged [Unknown]
  - Blood triglycerides increased [Unknown]
  - Nausea [Unknown]
  - Glomerular filtration rate decreased [Unknown]
  - Lethargy [Unknown]
  - Jaundice [Unknown]
  - Blood bilirubin unconjugated increased [Unknown]
  - Muscle atrophy [Unknown]
  - Mental status changes [Unknown]
  - Blood albumin decreased [Unknown]
  - Iron binding capacity total decreased [Unknown]
  - Blood immunoglobulin G increased [Unknown]
  - Low density lipoprotein increased [Unknown]
  - Arthralgia [Unknown]
  - Liver function test increased [Recovered/Resolved]
  - Gamma-glutamyltransferase increased [Unknown]
  - Nephropathy [Recovering/Resolving]
  - Blood creatinine increased [Unknown]
  - C-reactive protein increased [Unknown]
  - Vitamin B12 increased [Unknown]
  - Non-high-density lipoprotein cholesterol increased [Unknown]
  - Blood cholesterol increased [Unknown]

NARRATIVE: CASE EVENT DATE: 20190414
